FAERS Safety Report 11853640 (Version 7)
Quarter: 2018Q2

REPORT INFORMATION
  Report Type: Spontaneous
  Country: FR (occurrence: FR)
  Receive Date: 20151219
  Receipt Date: 20180612
  Transmission Date: 20180711
  Serious: Yes (Death, Hospitalization, Other)
  Sender: FDA-Public Use
  Company Number: FR-SUN PHARMACEUTICAL INDUSTRIES LTD-2015RR-107097

PATIENT

DRUGS (10)
  1. PRAVASTATINE [Interacting]
     Active Substance: PRAVASTATIN
     Indication: PRODUCT USED FOR UNKNOWN INDICATION
     Dosage: 40 MG
     Route: 065
  2. FUSIDIC ACID [Interacting]
     Active Substance: FUSIDIC ACID
     Indication: CELLULITIS STAPHYLOCOCCAL
     Dosage: 1500 MG, DAILY
     Route: 048
  3. FLUINDIONE [Concomitant]
     Active Substance: FLUINDIONE
     Indication: PRODUCT USED FOR UNKNOWN INDICATION
     Dosage: 15 MG
     Route: 065
  4. ALLOPURINOL. [Concomitant]
     Active Substance: ALLOPURINOL
     Indication: PRODUCT USED FOR UNKNOWN INDICATION
     Dosage: 200 MG
     Route: 065
  5. GENTAMICIN. [Concomitant]
     Active Substance: GENTAMICIN
     Indication: CELLULITIS STAPHYLOCOCCAL
     Dosage: INTRAVENOUS TREATMENT FOR SHORT PERIOD OF TIME
     Route: 042
  6. HYDROCHLOROTHIAZIDE. [Suspect]
     Active Substance: HYDROCHLOROTHIAZIDE
     Indication: PRODUCT USED FOR UNKNOWN INDICATION
     Dosage: 12.5 MG
     Route: 065
  7. CIPROFLOXACIN. [Interacting]
     Active Substance: CIPROFLOXACIN
     Indication: CELLULITIS STAPHYLOCOCCAL
     Dosage: 1000 MG/DAY
     Route: 048
  8. OXACILLIN [Concomitant]
     Active Substance: OXACILLIN SODIUM
     Indication: CELLULITIS STAPHYLOCOCCAL
     Dosage: INTRAVENOUS TREATMENT FOR SHORT PERIOD OF TIME
     Route: 042
  9. OLMESARTAN [Suspect]
     Active Substance: OLMESARTAN
     Indication: PRODUCT USED FOR UNKNOWN INDICATION
     Dosage: 40 MG
     Route: 065
  10. AMIODARONE [Concomitant]
     Active Substance: AMIODARONE
     Indication: PRODUCT USED FOR UNKNOWN INDICATION
     Dosage: 200 MG
     Route: 065

REACTIONS (6)
  - Rhabdomyolysis [Fatal]
  - Acute kidney injury [Unknown]
  - Hepatocellular injury [Recovering/Resolving]
  - Drug interaction [Unknown]
  - Gastrointestinal disorder [Unknown]
  - Blood bilirubin increased [Recovering/Resolving]
